FAERS Safety Report 10921632 (Version 1)
Quarter: 2015Q1

REPORT INFORMATION
  Report Type: Report from Study
  Country: US (occurrence: US)
  Receive Date: 20150317
  Receipt Date: 20150317
  Transmission Date: 20150721
  Serious: Yes (Other)
  Sender: FDA-Public Use
  Company Number: US-SANOFI-AVENTIS-2013SA095626

PATIENT
  Age: 49 Year
  Sex: Female

DRUGS (5)
  1. AUBAGIO [Suspect]
     Active Substance: TERIFLUNOMIDE
     Indication: MULTIPLE SCLEROSIS
     Route: 048
     Dates: start: 20150302
  2. BIOTIN [Concomitant]
     Active Substance: BIOTIN
  3. TECFIDERA [Concomitant]
     Active Substance: DIMETHYL FUMARATE
     Dates: start: 201412, end: 201501
  4. AUBAGIO [Suspect]
     Active Substance: TERIFLUNOMIDE
     Indication: MULTIPLE SCLEROSIS
     Route: 048
     Dates: start: 20130813, end: 20141101
  5. PROGESTERONE. [Concomitant]
     Active Substance: PROGESTERONE
     Indication: MENORRHAGIA

REACTIONS (17)
  - Paraesthesia [Unknown]
  - Dysgeusia [Unknown]
  - Hypoaesthesia [Unknown]
  - Nuclear magnetic resonance imaging abnormal [Unknown]
  - Decreased appetite [Unknown]
  - Alopecia [Unknown]
  - Extra dose administered [Unknown]
  - Dyspnoea [Not Recovered/Not Resolved]
  - Diarrhoea [Recovered/Resolved]
  - Cognitive disorder [Unknown]
  - Anxiety [Unknown]
  - Gastrointestinal disorder [Unknown]
  - Nausea [Recovered/Resolved]
  - Abdominal pain upper [Unknown]
  - Multiple sclerosis relapse [Not Recovered/Not Resolved]
  - Faeces discoloured [Unknown]
  - Drug dose omission [Unknown]
